FAERS Safety Report 5709452-8 (Version None)
Quarter: 2008Q2

REPORT INFORMATION
  Report Type: 
  Country: None (occurrence: None)
  Receive Date: 20080418
  Receipt Date: 20080407
  Transmission Date: 20081010
  Serious: Yes (Hospitalization)
  Sender: FDA-Public Use
  Company Number: IT-JNJFOC-20080401927

PATIENT
  Age: 87 Year
  Sex: Female

DRUGS (7)
  1. PRIXAR [Suspect]
     Indication: URINARY TRACT INFECTION
     Route: 048
  2. COUMADIN [Interacting]
     Indication: ANTICOAGULANT THERAPY
     Route: 048
  3. OMEPRAZOLE [Suspect]
     Indication: DRUG USE FOR UNKNOWN INDICATION
     Route: 048
  4. TRAZODONE HCL [Concomitant]
     Route: 048
  5. NOPRON [Concomitant]
     Route: 065
  6. MIRTAZAPINE [Concomitant]
     Route: 065
  7. DOMPERIDONE [Concomitant]
     Route: 065

REACTIONS (4)
  - DRUG INTERACTION [None]
  - HAEMATURIA [None]
  - HAEMOPTYSIS [None]
  - INTERNATIONAL NORMALISED RATIO INCREASED [None]
